FAERS Safety Report 4537504-7 (Version None)
Quarter: 2005Q1

REPORT INFORMATION
  Report Type: 
  Country: None (occurrence: None)
  Receive Date: 20041216
  Receipt Date: 20040819
  Transmission Date: 20050727
  Serious: Yes (Hospitalization, Other)
  Sender: FDA-Public Use
  Company Number: HQWYE453020AUG04

PATIENT
  Age: 52 Year
  Sex: Female

DRUGS (1)
  1. EFFEXOR XR [Suspect]
     Indication: DEPRESSION
     Dosage: ORAL
     Route: 048

REACTIONS (1)
  - CHEST PAIN [None]
